FAERS Safety Report 24946185 (Version 1)
Quarter: 2025Q1

REPORT INFORMATION
  Report Type: Spontaneous
  Country: DE (occurrence: DE)
  Receive Date: 20250210
  Receipt Date: 20250210
  Transmission Date: 20250409
  Serious: Yes (Other)
  Sender: ALKEM
  Company Number: DE-ALKEM LABORATORIES LIMITED-DE-ALKEM-2024-10559

PATIENT

DRUGS (2)
  1. LINEZOLID [Suspect]
     Active Substance: LINEZOLID
     Indication: Arthritis infective
     Route: 042
  2. LINEZOLID [Suspect]
     Active Substance: LINEZOLID
     Route: 048

REACTIONS (2)
  - Pancytopenia [Recovering/Resolving]
  - Product use in unapproved indication [Unknown]
